FAERS Safety Report 5482008-0 (Version None)
Quarter: 2007Q4

REPORT INFORMATION
  Report Type: 
  Country: None (occurrence: None)
  Receive Date: 20071004
  Receipt Date: 20070920
  Transmission Date: 20080405
  Serious: Yes (Hospitalization)
  Sender: FDA-Public Use
  Company Number: 2007RR-10222

PATIENT
  Age: 23 Year
  Sex: Male

DRUGS (12)
  1. FLUOXETINE [Suspect]
     Indication: MOOD ALTERED
     Dosage: 60 MG, QD; 80 MG, QD
  2. LINEZOLID [Suspect]
     Dosage: 600 MG, BID, ORAL
     Route: 048
  3. METHADONE HCL [Concomitant]
  4. VORICONAZOLE (VORICONAZOLE) [Concomitant]
  5. LORAZEPAM [Concomitant]
  6. QUETIAPINE FUMARATE [Concomitant]
  7. NICOTINE PATCH (NICOTINE PATCH) [Concomitant]
  8. ACYCLOVIR [Concomitant]
  9. LEVOFLOXACIN [Concomitant]
  10. VANCOMYCIN [Concomitant]
  11. AZTREONAM (AZTREONAM) [Concomitant]
  12. AMPHOTERICIN B [Concomitant]

REACTIONS (11)
  - ABDOMINAL PAIN [None]
  - BLOOD CULTURE POSITIVE [None]
  - DRUG INTERACTION [None]
  - DRUG WITHDRAWAL SYNDROME [None]
  - DYSPNOEA [None]
  - ENTEROCOCCAL INFECTION [None]
  - GAIT DISTURBANCE [None]
  - INFUSION RELATED REACTION [None]
  - MALAISE [None]
  - NEUTROPENIA [None]
  - SEROTONIN SYNDROME [None]
